FAERS Safety Report 7772057-1 (Version None)
Quarter: 2011Q3

REPORT INFORMATION
  Report Type: 
  Country: None (occurrence: None)
  Receive Date: 20110922
  Receipt Date: 20100915
  Transmission Date: 20111222
  Serious: Yes (Other)
  Sender: FDA-Public Use
  Company Number: US-ASTRAZENECA-2007UW09646

PATIENT
  Age: 29 Year
  Sex: Male
  Weight: 106.6 kg

DRUGS (19)
  1. SEROQUEL [Suspect]
     Indication: SLEEP DISORDER
     Dosage: 300 MG
     Route: 048
     Dates: start: 20010101, end: 20100101
  2. SEROQUEL [Suspect]
     Dosage: 25 MG TO 200 MG
     Route: 048
     Dates: start: 20010625
  3. SEROQUEL [Suspect]
     Route: 048
     Dates: start: 20030301, end: 20060501
  4. LITHIUM CARBONATE [Concomitant]
     Dosage: 300 MG TO 600 MG
     Dates: start: 19940603
  5. SEROQUEL [Suspect]
     Dosage: 300 MG, 3-4 TS P
     Route: 048
     Dates: start: 20040122, end: 20071101
  6. PAXIL [Concomitant]
     Dates: start: 19940603
  7. CELEBREX [Concomitant]
     Dates: start: 20010924
  8. TEGRETOL [Concomitant]
     Dosage: 300 MG
  9. ALPRAZOLAM [Concomitant]
     Dosage: 2 MG
  10. SEROQUEL [Suspect]
     Indication: BIPOLAR DISORDER
     Dosage: 300 MG
     Route: 048
     Dates: start: 20010101, end: 20100101
  11. SEROQUEL [Suspect]
     Dosage: 25 MG TO 200 MG
     Route: 048
     Dates: start: 20010625
  12. SEROQUEL [Suspect]
     Route: 048
     Dates: start: 20040416
  13. RISPERDAL [Concomitant]
     Dates: start: 20060101
  14. GEODON [Concomitant]
     Dosage: 20 MG TO 60 MG
     Dates: start: 20010321
  15. SEROQUEL [Suspect]
     Route: 048
     Dates: start: 20030301, end: 20060501
  16. SEROQUEL [Suspect]
     Route: 048
     Dates: start: 20040416
  17. ZYPREXA [Concomitant]
     Indication: BIPOLAR DISORDER
     Dates: start: 20050101
  18. SEROQUEL [Suspect]
     Dosage: 300 MG, 3-4 TS P
     Route: 048
     Dates: start: 20040122, end: 20071101
  19. DEPAKOTE ER [Concomitant]
     Dosage: 500 MG 3 BID
     Route: 048
     Dates: start: 20010913

REACTIONS (7)
  - TYPE 2 DIABETES MELLITUS [None]
  - DIABETES MELLITUS [None]
  - WEIGHT INCREASED [None]
  - BACK DISORDER [None]
  - TYPE 1 DIABETES MELLITUS [None]
  - PANCREATITIS ACUTE [None]
  - NECK INJURY [None]
